FAERS Safety Report 18142046 (Version 2)
Quarter: 2021Q2

REPORT INFORMATION
  Report Type: Spontaneous
  Country: ZA (occurrence: ZA)
  Receive Date: 20200812
  Receipt Date: 20210417
  Transmission Date: 20210717
  Serious: Yes (Other)
  Sender: FDA-Public Use
  Company Number: NVSC2020ZA215321

PATIENT
  Age: 80 Year
  Sex: Female

DRUGS (4)
  1. TAREG [Suspect]
     Active Substance: VALSARTAN
     Dosage: 40 MG, QD
     Route: 048
  2. CO?TAREG [Suspect]
     Active Substance: HYDROCHLOROTHIAZIDE\VALSARTAN
     Indication: HYPERTENSION
     Dosage: 80 MG, QD
     Route: 048
  3. TAREG [Suspect]
     Active Substance: VALSARTAN
     Indication: HYPERTENSION
     Dosage: 80 MG, QD
     Route: 048
  4. EXFORGE [Suspect]
     Active Substance: AMLODIPINE BESYLATE\VALSARTAN
     Indication: HYPERTENSION
     Dosage: UNK
     Route: 048

REACTIONS (12)
  - Blood potassium increased [Recovering/Resolving]
  - Pollakiuria [Unknown]
  - Tooth disorder [Unknown]
  - Off label use [Unknown]
  - Loss of consciousness [Unknown]
  - Renal impairment [Recovering/Resolving]
  - Blood cholesterol increased [Unknown]
  - Weight decreased [Unknown]
  - Feeding disorder [Unknown]
  - Blood sodium decreased [Unknown]
  - Malaise [Unknown]
  - Dehydration [Unknown]
